FAERS Safety Report 16594874 (Version 3)
Quarter: 2019Q3

REPORT INFORMATION
  Report Type: Not Available
  Country: US (occurrence: US)
  Receive Date: 20190718
  Receipt Date: 20190904
  Transmission Date: 20191004
  Serious: Yes (Hospitalization)
  Sender: FDA-Public Use
  Company Number: US-NEUROCRINE BIOSCIENCES INC.-2019NBI01934

PATIENT
  Age: 56 Year
  Sex: Male

DRUGS (2)
  1. INGREZZA [Suspect]
     Active Substance: VALBENAZINE
     Route: 048
     Dates: start: 20190322, end: 201904
  2. INGREZZA [Suspect]
     Active Substance: VALBENAZINE
     Indication: TARDIVE DYSKINESIA
     Route: 048
     Dates: start: 20190314, end: 20190321

REACTIONS (4)
  - Suicide attempt [Recovered/Resolved]
  - Anxiety [Unknown]
  - Intentional overdose [Recovered/Resolved]
  - Social stay hospitalisation [Recovered/Resolved]

NARRATIVE: CASE EVENT DATE: 201904
